FAERS Safety Report 25343593 (Version 1)
Quarter: 2025Q2

REPORT INFORMATION
  Report Type: Report from Study
  Country: IN (occurrence: IN)
  Receive Date: 20250521
  Receipt Date: 20250521
  Transmission Date: 20250717
  Serious: Yes (Death)
  Sender: DAIICHI
  Company Number: IN-AstraZeneca-CH-00872595A

PATIENT
  Sex: Male

DRUGS (1)
  1. ENHERTU [Suspect]
     Active Substance: FAM-TRASTUZUMAB DERUXTECAN-NXKI
     Indication: Oesophageal adenocarcinoma
     Dosage: 100 MG, ONCE EVERY 3 WK
     Route: 041

REACTIONS (4)
  - Malignant neoplasm progression [Fatal]
  - Thrombosis [Fatal]
  - Blood viscosity decreased [Fatal]
  - Blood albumin decreased [Fatal]

NARRATIVE: CASE EVENT DATE: 20250319
